FAERS Safety Report 7653216-5 (Version None)
Quarter: 2011Q3

REPORT INFORMATION
  Report Type: 
  Country: None (occurrence: None)
  Receive Date: 20110803
  Receipt Date: 20110718
  Transmission Date: 20111222
  Serious: No
  Sender: FDA-Public Use
  Company Number: US-BAYER-2011-063548

PATIENT
  Sex: Female

DRUGS (2)
  1. ANALGESICS [Concomitant]
     Indication: BACK PAIN
  2. ALEVE (CAPLET) [Suspect]
     Indication: BACK PAIN
     Dosage: 220 MG, ONCE
     Route: 048
     Dates: start: 20110718

REACTIONS (2)
  - BACK PAIN [None]
  - ENERGY INCREASED [None]
